FAERS Safety Report 7835978-7 (Version None)
Quarter: 2011Q4

REPORT INFORMATION
  Report Type: 
  Country: None (occurrence: None)
  Receive Date: 20111024
  Receipt Date: 20101102
  Transmission Date: 20120403
  Serious: No
  Sender: FDA-Public Use
  Company Number: US-ABBOTT-10P-163-0669637-00

PATIENT
  Age: 30 Year
  Sex: Female

DRUGS (1)
  1. LUPRON [Suspect]
     Indication: PRODUCT USED FOR UNKNOWN INDICATION
     Dates: start: 20100908

REACTIONS (14)
  - NAUSEA [None]
  - NIGHT SWEATS [None]
  - PANIC ATTACK [None]
  - WEIGHT INCREASED [None]
  - DEPRESSED MOOD [None]
  - DISTURBANCE IN ATTENTION [None]
  - ANXIETY [None]
  - FATIGUE [None]
  - NIGHTMARE [None]
  - ABDOMINAL DISTENSION [None]
  - INSOMNIA [None]
  - HEADACHE [None]
  - MIGRAINE [None]
  - MOOD ALTERED [None]
